FAERS Safety Report 24298158 (Version 1)
Quarter: 2024Q3

REPORT INFORMATION
  Report Type: Other
  Country: JP (occurrence: JP)
  Receive Date: 20240909
  Receipt Date: 20240909
  Transmission Date: 20241017
  Serious: Yes (Hospitalization, Other)
  Sender: B BRAUN
  Company Number: JP-B.Braun Medical Inc.-2161381

PATIENT
  Age: 99 Year
  Sex: Female

DRUGS (2)
  1. HEPARIN SODIUM IN DEXTROSE [Suspect]
     Active Substance: HEPARIN SODIUM
     Indication: Deep vein thrombosis
  2. EDOXABAN [Suspect]
     Active Substance: EDOXABAN

REACTIONS (1)
  - Drug ineffective [Unknown]
